FAERS Safety Report 7205643-8 (Version None)
Quarter: 2010Q4

REPORT INFORMATION
  Report Type: 
  Country: None (occurrence: None)
  Receive Date: 20101231
  Receipt Date: 20101220
  Transmission Date: 20110411
  Serious: Yes (Hospitalization)
  Sender: FDA-Public Use
  Company Number: US-ELI_LILLY_AND_COMPANY-US201008005866

PATIENT
  Sex: Female

DRUGS (9)
  1. FORTEO [Suspect]
     Indication: OSTEOPOROSIS
     Dosage: 20 UG, DAILY (1/D)
     Route: 065
     Dates: start: 20100913
  2. FORTEO [Suspect]
     Dosage: 20 UG, DAILY (1/D)
     Dates: start: 20100608
  3. FORTEO [Suspect]
     Dosage: 20 UG, DAILY (1/D)
  4. CYMBALTA [Concomitant]
     Dosage: UNK, UNKNOWN
     Route: 065
  5. FOLTRIN [Concomitant]
     Dosage: UNK, UNKNOWN
     Route: 065
  6. POTASSIUM CHLORIDE [Concomitant]
     Dosage: UNK, UNKNOWN
     Route: 065
  7. MIRTAZAPINE [Concomitant]
     Dosage: UNK, UNKNOWN
     Route: 065
  8. TRAMADOL [Concomitant]
     Dosage: UNK, UNKNOWN
     Route: 065
  9. TRAZODONE [Concomitant]
     Dosage: UNK, UNKNOWN
     Route: 065

REACTIONS (6)
  - ARTHRALGIA [None]
  - HYPOACUSIS [None]
  - MOBILITY DECREASED [None]
  - NECK PAIN [None]
  - OSTEOARTHRITIS [None]
  - PAIN IN EXTREMITY [None]
